FAERS Safety Report 4375707-5 (Version None)
Quarter: 2004Q2

REPORT INFORMATION
  Report Type: 
  Country: None (occurrence: None)
  Receive Date: 20040608
  Receipt Date: 20040106
  Transmission Date: 20050107
  Serious: Yes (Hospitalization)
  Sender: FDA-Public Use
  Company Number: 200410078BCC

PATIENT
  Sex: Female
  Weight: 63.5036 kg

DRUGS (2)
  1. ALEVE [Suspect]
     Dosage: 2300 MG, TOTAL DAILY, ORAL;  4400 MG, TOTAL DAILY, ORAL
     Route: 048
     Dates: start: 20040105
  2. ALEVE [Suspect]
     Dosage: 2300 MG, TOTAL DAILY, ORAL;  4400 MG, TOTAL DAILY, ORAL
     Route: 048
     Dates: start: 20040106

REACTIONS (1)
  - DIZZINESS [None]
